FAERS Safety Report 8429708-8 (Version None)
Quarter: 2012Q2

REPORT INFORMATION
  Report Type: 
  Country: None (occurrence: None)
  Receive Date: 20120612
  Receipt Date: 20120531
  Transmission Date: 20120825
  Serious: Yes (Other)
  Sender: FDA-Public Use
  Company Number: JP-ELI_LILLY_AND_COMPANY-JP201206000473

PATIENT
  Age: 65 Year
  Sex: Male

DRUGS (1)
  1. GEMZAR [Suspect]
     Indication: LUNG NEOPLASM MALIGNANT

REACTIONS (2)
  - INTERSTITIAL LUNG DISEASE [None]
  - LUNG DISORDER [None]
